FAERS Safety Report 9554049 (Version 1)
Quarter: 2013Q3

REPORT INFORMATION
  Report Type: Spontaneous
  Country: GB (occurrence: GB)
  Receive Date: 20130925
  Receipt Date: 20130925
  Transmission Date: 20140515
  Serious: Yes (Other)
  Sender: FDA-Public Use
  Company Number: GB-ACTAVIS-2013-16801

PATIENT
  Age: 19 Year
  Sex: Female
  Weight: 46 kg

DRUGS (1)
  1. TRAMADOL (UNKNOWN) [Suspect]
     Indication: CYST
     Dosage: 100 MG, UNKNOWN
     Route: 065
     Dates: start: 20130812, end: 20130819

REACTIONS (2)
  - Hallucination [Recovered/Resolved]
  - Self-injurious ideation [Recovered/Resolved]
